FAERS Safety Report 6340916-2 (Version None)
Quarter: 2009Q3

REPORT INFORMATION
  Report Type: 
  Country: None (occurrence: None)
  Receive Date: 20090904
  Receipt Date: 20090831
  Transmission Date: 20100115
  Serious: Yes (Death)
  Sender: FDA-Public Use
  Company Number: JP-ASTRAZENECA-2009SE10840

PATIENT
  Age: 75 Year
  Sex: Male

DRUGS (8)
  1. OMEPRAL [Suspect]
     Indication: REFLUX OESOPHAGITIS
     Route: 048
     Dates: start: 20071129, end: 20090812
  2. NU-LOTAN [Concomitant]
     Route: 048
  3. ALLORIN [Concomitant]
     Route: 048
  4. HERBESSER [Concomitant]
     Route: 048
  5. ALFAROL [Concomitant]
     Route: 048
  6. GLAKAY [Concomitant]
     Route: 048
  7. OPALMON [Concomitant]
     Route: 048
  8. CLEANAL [Concomitant]
     Route: 048

REACTIONS (1)
  - INTERSTITIAL LUNG DISEASE [None]
